FAERS Safety Report 10784097 (Version 1)
Quarter: 2015Q1

REPORT INFORMATION
  Report Type: Spontaneous
  Country: FR (occurrence: FR)
  Receive Date: 20150211
  Receipt Date: 20150211
  Transmission Date: 20150721
  Serious: Yes (Disabling)
  Sender: FDA-Public Use
  Company Number: FR-009507513-1412FRA011536

PATIENT
  Sex: Female
  Weight: 64 kg

DRUGS (4)
  1. EZETROL [Suspect]
     Active Substance: EZETIMIBE
     Indication: HYPERTRIGLYCERIDAEMIA
     Dosage: 10 MG, EVERY MORNING
     Route: 048
     Dates: start: 200410, end: 20141227
  2. LEVOTHYROX [Concomitant]
     Active Substance: LEVOTHYROXINE
     Indication: HYPOTHYROIDISM
     Dosage: 1 DF, QAM
     Dates: start: 2000
  3. PIASCLEDINE [Concomitant]
     Active Substance: AVOCADO OIL\SOYBEAN OIL
     Indication: ARTHROPATHY
     Dosage: 1 TABLET,EVERY DAY AT NOON
     Dates: start: 1995
  4. DAFALGAN [Concomitant]
     Active Substance: ACETAMINOPHEN
     Indication: RHEUMATOID ARTHRITIS
     Dosage: TOTAL DAILY DOSE 1500 MG
     Dates: start: 2002

REACTIONS (3)
  - Dyspnoea [Recovering/Resolving]
  - Product use issue [Unknown]
  - Phrenic nerve paralysis [Recovering/Resolving]

NARRATIVE: CASE EVENT DATE: 2012
